FAERS Safety Report 8801776 (Version 1)
Quarter: 2012Q4

REPORT INFORMATION
  Report Type: 
  Country: US (occurrence: US)
  Receive Date: 20120921
  Receipt Date: 20120921
  Transmission Date: 20130627
  Serious: Yes (Disabling, Other)
  Sender: FDA-Public Use
  Company Number: US-BAYER-200511009BWH

PATIENT
  Age: 25 Year
  Sex: Male

DRUGS (10)
  1. CIPROFLOXACIN [Suspect]
     Indication: BACTERIAL PROSTATITIS
     Dosage: 500 mg, BID
     Route: 048
     Dates: start: 200408, end: 20041009
  2. PREDNISONE [Interacting]
     Indication: DENTAL IMPLANTATION
     Dosage: UNK UNK, BID
     Dates: start: 20040924, end: 20040930
  3. IBUPROFEN [Interacting]
     Indication: PAIN
     Dosage: UNK
     Dates: start: 200409
  4. PENICILLIN [Interacting]
     Indication: DEVICE RELATED INFECTION
     Dosage: UNK
     Dates: start: 200409
  5. BUSPAR [Interacting]
     Indication: BRUXISM
     Dosage: UNK
     Dates: start: 20040906
  6. UNSPECIFIED INGREDIENT [Interacting]
     Indication: PAIN
     Dosage: UNK
     Dates: start: 200409
  7. VICODIN [Interacting]
     Indication: PAIN
     Dosage: UNK
     Dates: start: 200409
  8. PROZAC [Interacting]
     Dosage: UNK
     Dates: start: 20040906, end: 20040914
  9. PAXIL [Concomitant]
     Dosage: UNK
     Dates: start: 200410
  10. ZANAFLEX [Concomitant]
     Dosage: UNK
     Dates: start: 200410

REACTIONS (41)
  - Fibromyalgia [Not Recovered/Not Resolved]
  - Back pain [Not Recovered/Not Resolved]
  - Pain [Not Recovered/Not Resolved]
  - Disability [Not Recovered/Not Resolved]
  - Physical disability [Not Recovered/Not Resolved]
  - Walking disability [Not Recovered/Not Resolved]
  - Chronic fatigue syndrome [Not Recovered/Not Resolved]
  - Irritable bowel syndrome [Not Recovered/Not Resolved]
  - Muscle injury [Not Recovered/Not Resolved]
  - Weight decreased [Not Recovered/Not Resolved]
  - Muscle atrophy [Not Recovered/Not Resolved]
  - Asthenia [Not Recovered/Not Resolved]
  - Depression [Not Recovered/Not Resolved]
  - Musculoskeletal pain [Not Recovered/Not Resolved]
  - Insomnia [Not Recovered/Not Resolved]
  - Dizziness [Not Recovered/Not Resolved]
  - Headache [Not Recovered/Not Resolved]
  - Pain in extremity [Not Recovered/Not Resolved]
  - Muscle disorder [Not Recovered/Not Resolved]
  - Joint crepitation [Not Recovered/Not Resolved]
  - Spinal pain [Not Recovered/Not Resolved]
  - Arthralgia [Not Recovered/Not Resolved]
  - Neck pain [Not Recovered/Not Resolved]
  - Sleep disorder [Not Recovered/Not Resolved]
  - Loss of libido [Not Recovered/Not Resolved]
  - Myalgia [Not Recovered/Not Resolved]
  - Cartilage injury [Unknown]
  - Muscle strain [None]
  - Vein discolouration [None]
  - Costochondritis [None]
  - Musculoskeletal chest pain [Not Recovered/Not Resolved]
  - Musculoskeletal discomfort [Not Recovered/Not Resolved]
  - Intervertebral disc protrusion [None]
  - Suicidal ideation [None]
  - Obsessive thoughts [None]
  - Nerve injury [None]
  - Hypoaesthesia [None]
  - Burning sensation [Not Recovered/Not Resolved]
  - Paraesthesia [Not Recovered/Not Resolved]
  - Confusional state [None]
  - Disturbance in attention [None]
